FAERS Safety Report 17057248 (Version 1)
Quarter: 2019Q4

REPORT INFORMATION
  Report Type: Spontaneous
  Country: CA (occurrence: CA)
  Receive Date: 20191121
  Receipt Date: 20191121
  Transmission Date: 20200122
  Serious: Yes (Disabling)
  Sender: FDA-Public Use
  Company Number: CA-ACCORD-161018

PATIENT
  Age: 84 Year
  Sex: Male
  Weight: 89 kg

DRUGS (1)
  1. ESCITALOPRAM [Suspect]
     Active Substance: ESCITALOPRAM OXALATE
     Indication: DEPRESSION
     Dosage: 1 EVERY 1 DAY(S)
     Route: 048

REACTIONS (6)
  - Decreased activity [Unknown]
  - Rash [Unknown]
  - Feeding disorder [Unknown]
  - Skin abrasion [Unknown]
  - Pruritus [Unknown]
  - Sleep disorder [Unknown]
